FAERS Safety Report 7154172-9 (Version None)
Quarter: 2010Q4

REPORT INFORMATION
  Report Type: 
  Country: None (occurrence: None)
  Receive Date: 20101213
  Receipt Date: 20101202
  Transmission Date: 20110411
  Serious: Yes (Other)
  Sender: FDA-Public Use
  Company Number: US-SANOFI-AVENTIS-2010SA073658

PATIENT
  Sex: Male

DRUGS (1)
  1. LANTUS [Suspect]
     Dosage: 12-14 UNITS ONCE DAILY IN PM
     Route: 058
     Dates: start: 20090101

REACTIONS (3)
  - EXPIRED DRUG ADMINISTERED [None]
  - PAIN [None]
  - PANCREATIC CYST [None]
